FAERS Safety Report 24714188 (Version 1)
Quarter: 2024Q4

REPORT INFORMATION
  Report Type: Spontaneous
  Country: US (occurrence: US)
  Receive Date: 20241209
  Receipt Date: 20241209
  Transmission Date: 20250115
  Serious: Yes (Other)
  Sender: REGENERON
  Company Number: US-REGENERON PHARMACEUTICALS, INC.-2024-160196

PATIENT
  Sex: Male

DRUGS (2)
  1. EYLEA [Suspect]
     Active Substance: AFLIBERCEPT
     Indication: Macular oedema
     Dosage: 2 MG, EVERY 4 WEEKS, FORMULATION: PFS (GERRESHEIMER)
     Dates: start: 20240129, end: 2024
  2. EYLEA [Suspect]
     Active Substance: AFLIBERCEPT
     Indication: Retinal vein occlusion

REACTIONS (3)
  - Myocardial infarction [Unknown]
  - Neck pain [Unknown]
  - Malaise [Unknown]

NARRATIVE: CASE EVENT DATE: 20240101
